FAERS Safety Report 12697616 (Version 1)
Quarter: 2016Q3

REPORT INFORMATION
  Report Type: Spontaneous
  Country: TR (occurrence: None)
  Receive Date: 20160829
  Receipt Date: 20160829
  Transmission Date: 20161109
  Serious: Yes (Disabling)
  Sender: FDA-Public Use
  Company Number: None

PATIENT
  Age: 25 Year
  Sex: Female
  Weight: 56 kg

DRUGS (3)
  1. GLIFOR 1000MG METFORMIN HCL BILIM ILAC SAN.VE TIC. A.S. [Suspect]
     Active Substance: METFORMIN HYDROCHLORIDE
     Indication: POLYCYSTIC OVARIES
     Route: 048
     Dates: start: 20160422, end: 20160826
  2. METFORMIN [Concomitant]
     Active Substance: METFORMIN HYDROCHLORIDE
  3. INOSITOL FOLATE [Concomitant]

REACTIONS (3)
  - Fatigue [None]
  - Blood sodium decreased [None]
  - Oedema [None]

NARRATIVE: CASE EVENT DATE: 20160825
